FAERS Safety Report 8030890 (Version 2)
Quarter: 2013Q3

REPORT INFORMATION
  Report Type: Spontaneous
  Country: US (occurrence: US)
  Receive Date: 20110712
  Receipt Date: 20130912
  Transmission Date: 20140515
  Serious: Yes (Other)
  Sender: FDA-Public Use
  Company Number: US-PFIZER INC-2011152902

PATIENT
  Age: 39 Year
  Sex: Female

DRUGS (3)
  1. CHANTIX [Suspect]
     Dosage: UNK
     Dates: start: 200905
  2. CHANTIX [Suspect]
     Dosage: 1 MG, UNK
     Dates: start: 20090729, end: 20091111
  3. CLONAZEPAM [Concomitant]
     Dosage: 0.5 MG, UNK

REACTIONS (3)
  - Intentional overdose [Unknown]
  - Suicide attempt [Unknown]
  - Depression [Unknown]
